FAERS Safety Report 20346930 (Version 1)
Quarter: 2022Q1

REPORT INFORMATION
  Report Type: Report from Study
  Country: CA (occurrence: CA)
  Receive Date: 20220118
  Receipt Date: 20220118
  Transmission Date: 20220423
  Serious: Yes (Other)
  Sender: FDA-Public Use
  Company Number: CA-PFIZER INC-202200019739

PATIENT
  Age: 77 Year
  Sex: Male
  Weight: 70 kg

DRUGS (3)
  1. INLYTA [Suspect]
     Active Substance: AXITINIB
     Indication: Renal cell carcinoma
     Dosage: 5 MG, 2X/DAY
     Route: 065
  2. INLYTA [Suspect]
     Active Substance: AXITINIB
     Dosage: 2 MG
     Route: 065
  3. PEMBROLIZUMAB [Suspect]
     Active Substance: PEMBROLIZUMAB
     Indication: Renal cell carcinoma
     Dosage: 200 MG  1 EVERY 3 WEEKS
     Route: 042

REACTIONS (5)
  - Balance disorder [Unknown]
  - Blood pressure abnormal [Unknown]
  - Pain in extremity [Unknown]
  - Heart valve replacement [Unknown]
  - Product use issue [Unknown]
